FAERS Safety Report 4835685-9 (Version None)
Quarter: 2005Q4

REPORT INFORMATION
  Report Type: 
  Country: None (occurrence: None)
  Receive Date: 20051123
  Receipt Date: 20041222
  Transmission Date: 20060501
  Serious: No
  Sender: FDA-Public Use
  Company Number: US-BRISTOL-MYERS SQUIBB COMPANY-12803748

PATIENT
  Age: 44 Year
  Sex: Female
  Weight: 63 kg

DRUGS (5)
  1. PROLIXIN [Suspect]
     Indication: SCHIZOAFFECTIVE DISORDER
     Dosage: DOSES VARIED, USUALLY ANYWHERE FROM 5MG ORALLY DAILY TO 35MG INJECTIONS EVERY 2 WEEKS
     Dates: start: 19880101
  2. PROLIXIN [Suspect]
     Dosage: DOSES VARIED, USUALLY ANYWHERE FROM 5MG ORALLY DAILY TO 35MG INJECTIONS EVERY 2 WEEKS
     Route: 051
  3. BUSPAR [Concomitant]
  4. ATIVAN [Concomitant]
  5. LUVOX [Concomitant]

REACTIONS (1)
  - POLLAKIURIA [None]
